FAERS Safety Report 6100491-4 (Version None)
Quarter: 2009Q1

REPORT INFORMATION
  Report Type: 
  Country: None (occurrence: None)
  Receive Date: 20090303
  Receipt Date: 20090219
  Transmission Date: 20090719
  Serious: Yes (Other)
  Sender: FDA-Public Use
  Company Number: US-AVENTIS-200910325GDDC

PATIENT
  Age: 59 Year
  Sex: Female
  Weight: 55 kg

DRUGS (13)
  1. DOCETAXEL [Suspect]
     Route: 042
     Dates: start: 20080919, end: 20081112
  2. PLACEBO [Suspect]
     Route: 048
     Dates: start: 20080919, end: 20081126
  3. PREDNISONE [Suspect]
     Route: 048
     Dates: start: 20081105
  4. DURAGESIC-100 [Concomitant]
     Dosage: DOSE: 100/25 MCG
  5. GABAPENTIN [Concomitant]
  6. AMBIEN [Concomitant]
  7. BACTRIM DS [Concomitant]
  8. SYNTHROID [Concomitant]
     Dosage: DOSE: 100 MCG
  9. CLONAZEPAM [Concomitant]
  10. DILAUDID [Concomitant]
  11. FLAGYL [Concomitant]
  12. REGLAN [Concomitant]
     Dosage: DOSE QUANTITY: 5; DOSE UNIT: MILLIGRAM PER MILLILITRE
  13. ZOFRAN [Concomitant]

REACTIONS (1)
  - FEMALE GENITAL TRACT FISTULA [None]
